FAERS Safety Report 15904551 (Version 1)
Quarter: 2019Q1

REPORT INFORMATION
  Report Type: Report from Study
  Country: US (occurrence: US)
  Receive Date: 20190204
  Receipt Date: 20190204
  Transmission Date: 20190417
  Serious: Yes (Hospitalization, Other)
  Sender: FDA-Public Use
  Company Number: US-PFIZER INC-2018474893

PATIENT
  Age: 68 Year
  Sex: Male

DRUGS (3)
  1. SUTENT [Suspect]
     Active Substance: SUNITINIB MALATE
     Indication: RENAL CELL CARCINOMA
     Dosage: 25 MG, CYCLIC (DAILY, 2 WEEKS ON, 1 WEEK OFF)
     Route: 048
     Dates: start: 20181021, end: 20181111
  2. SUTENT [Suspect]
     Active Substance: SUNITINIB MALATE
     Dosage: 25 MG, CYCLIC (2 WEEKS ON, 1 WEEK OFF)
     Dates: start: 20181119, end: 201812
  3. SUTENT [Suspect]
     Active Substance: SUNITINIB MALATE
     Dosage: 25 MG, 1X/DAY
     Route: 048
     Dates: end: 201901

REACTIONS (15)
  - International normalised ratio increased [Recovered/Resolved]
  - Thrombocytopenia [Unknown]
  - Peripheral swelling [Recovered/Resolved]
  - Skin disorder [Unknown]
  - Diarrhoea [Recovering/Resolving]
  - Pain in extremity [Not Recovered/Not Resolved]
  - Haemoptysis [Recovered/Resolved]
  - Blood creatinine increased [Unknown]
  - Fatigue [Unknown]
  - Palmar-plantar erythrodysaesthesia syndrome [Unknown]
  - Cellulitis [Unknown]
  - Leukopenia [Unknown]
  - Gout [Unknown]
  - Arthralgia [Not Recovered/Not Resolved]
  - Thirst [Unknown]

NARRATIVE: CASE EVENT DATE: 2018
